FAERS Safety Report 14061681 (Version 1)
Quarter: 2017Q4

REPORT INFORMATION
  Report Type: Spontaneous
  Country: US (occurrence: US)
  Receive Date: 20171009
  Receipt Date: 20171009
  Transmission Date: 20180321
  Serious: Yes (Life-Threatening, Hospitalization, Other)
  Sender: FDA-Public Use
  Company Number: US-ACCORD-059607

PATIENT
  Age: 64 Year
  Sex: Female

DRUGS (2)
  1. ETOPOSIDE. [Suspect]
     Active Substance: ETOPOSIDE
     Indication: SMALL CELL LUNG CANCER
  2. CARBOPLATIN. [Suspect]
     Active Substance: CARBOPLATIN
     Indication: SMALL CELL LUNG CANCER

REACTIONS (7)
  - Pulmonary embolism [Unknown]
  - Serositis [Unknown]
  - Pancytopenia [Unknown]
  - Large intestinal ulcer perforation [Unknown]
  - Leukocytosis [Unknown]
  - Megacolon [Unknown]
  - Retroperitoneal abscess [Unknown]
